FAERS Safety Report 18560172 (Version 2)
Quarter: 2021Q1

REPORT INFORMATION
  Report Type: Spontaneous
  Country: US (occurrence: US)
  Receive Date: 20201130
  Receipt Date: 20210301
  Transmission Date: 20210419
  Serious: No
  Sender: FDA-Public Use
  Company Number: US-AMNEAL PHARMACEUTICALS-2020-AMRX-02861

PATIENT
  Sex: Female

DRUGS (2)
  1. ESTRADIOL TRANSDERMAL SYSTEM [Suspect]
     Active Substance: ESTRADIOL
     Dosage: 0.05MG
     Route: 062
  2. ESTRADIOL TRANSDERMAL SYSTEM [Suspect]
     Active Substance: ESTRADIOL
     Indication: PRODUCT USED FOR UNKNOWN INDICATION
     Dosage: 0.1MG
     Route: 062

REACTIONS (6)
  - Hot flush [Recovered/Resolved]
  - Product adhesion issue [Unknown]
  - Drug ineffective [Unknown]
  - Application site irritation [Recovered/Resolved]
  - Menopausal symptoms [Recovered/Resolved]
  - Rash [Recovered/Resolved]
